FAERS Safety Report 6993660-2 (Version None)
Quarter: 2010Q3

REPORT INFORMATION
  Report Type: 
  Country: None (occurrence: None)
  Receive Date: 20100917
  Receipt Date: 20070705
  Transmission Date: 20110219
  Serious: Yes (Hospitalization)
  Sender: FDA-Public Use
  Company Number: US-ASTRAZENECA-2006UW26575

PATIENT
  Age: 23665 Day
  Sex: Male

DRUGS (16)
  1. SEROQUEL [Suspect]
     Indication: DEPRESSION
     Dosage: 25-600 MG
     Route: 048
     Dates: start: 20050909
  2. SEROQUEL [Suspect]
     Indication: ANXIETY
     Dosage: 25-600 MG
     Route: 048
     Dates: start: 20050909
  3. SEROQUEL [Suspect]
     Indication: BIPOLAR DISORDER
     Dosage: 25-600 MG
     Route: 048
     Dates: start: 20050909
  4. SEROQUEL [Suspect]
     Route: 048
     Dates: start: 20050909, end: 20051013
  5. SEROQUEL [Suspect]
     Route: 048
     Dates: start: 20050909, end: 20051013
  6. SEROQUEL [Suspect]
     Route: 048
     Dates: start: 20050909, end: 20051013
  7. SEROQUEL [Suspect]
     Route: 048
     Dates: start: 20051015, end: 20051130
  8. SEROQUEL [Suspect]
     Route: 048
     Dates: start: 20051015, end: 20051130
  9. SEROQUEL [Suspect]
     Route: 048
     Dates: start: 20051015, end: 20051130
  10. RISPERDAL [Concomitant]
     Dates: start: 20050701, end: 20051001
  11. ASPIRIN [Concomitant]
     Route: 048
     Dates: start: 20050909
  12. GLUCOPHAGE [Concomitant]
     Route: 048
     Dates: start: 20050909
  13. REGLAN [Concomitant]
     Route: 048
     Dates: start: 20050909
  14. EFFEXOR XR [Concomitant]
     Route: 048
     Dates: start: 20050909
  15. SENOKOT [Concomitant]
     Dosage: 2 TABS AT BEDTIME
     Dates: start: 20050909
  16. PEPCID [Concomitant]
     Dosage: 20-40 MG
     Route: 048
     Dates: start: 20050909

REACTIONS (4)
  - DEPRESSION [None]
  - DISORIENTATION [None]
  - HYPERGLYCAEMIA [None]
  - TYPE 2 DIABETES MELLITUS [None]
